FAERS Safety Report 4285410-8 (Version None)
Quarter: 2004Q1

REPORT INFORMATION
  Report Type: 
  Country: None (occurrence: None)
  Receive Date: 20040202
  Receipt Date: 20040116
  Transmission Date: 20041129
  Serious: Yes (Other)
  Sender: FDA-Public Use
  Company Number: 8005026

PATIENT
  Age: 27 Year
  Sex: Male

DRUGS (2)
  1. KEPPRA [Suspect]
     Indication: EPILEPSY
     Dosage: 1000 MG 2/D PO
     Route: 048
     Dates: start: 20030701
  2. TOPAMAX [Suspect]
     Indication: EPILEPSY
     Dosage: 300 MG 2/D PO
     Route: 048

REACTIONS (3)
  - DRUG INTERACTION POTENTIATION [None]
  - SPEECH DISORDER [None]
  - WEIGHT DECREASED [None]
